FAERS Safety Report 7110670-5 (Version None)
Quarter: 2010Q4

REPORT INFORMATION
  Report Type: 
  Country: None (occurrence: None)
  Receive Date: 20101118
  Receipt Date: 20101112
  Transmission Date: 20110411
  Serious: Yes (Death)
  Sender: FDA-Public Use
  Company Number: A0790831A

PATIENT
  Age: 60 Year
  Sex: Female

DRUGS (1)
  1. AVANDIA [Suspect]
     Route: 048
     Dates: start: 20040901, end: 20070501

REACTIONS (3)
  - CARDIOVASCULAR DISORDER [None]
  - DEATH [None]
  - MYOCARDIAL INFARCTION [None]
